FAERS Safety Report 23077683 (Version 4)
Quarter: 2024Q1

REPORT INFORMATION
  Report Type: Spontaneous
  Country: US (occurrence: US)
  Receive Date: 20231018
  Receipt Date: 20240312
  Transmission Date: 20240409
  Serious: Yes (Other)
  Sender: FDA-Public Use
  Company Number: US-SA-SAC20231016000310

PATIENT
  Age: 4 Year
  Sex: Female
  Weight: 19 kg

DRUGS (2)
  1. DUPIXENT [Suspect]
     Active Substance: DUPILUMAB
     Indication: Dermatitis atopic
     Dosage: 300 MG, Q4W
     Route: 058
  2. DUPIXENT [Suspect]
     Active Substance: DUPILUMAB
     Dosage: 200 MG, QOW
     Route: 058

REACTIONS (8)
  - Croup infectious [Recovering/Resolving]
  - Pyrexia [Unknown]
  - Cough [Unknown]
  - Malaise [Unknown]
  - Skin fissures [Not Recovered/Not Resolved]
  - Dry skin [Not Recovered/Not Resolved]
  - Dermatitis atopic [Unknown]
  - Off label use [Unknown]

NARRATIVE: CASE EVENT DATE: 20231011
